FAERS Safety Report 9240010 (Version 1)
Quarter: 2013Q2

REPORT INFORMATION
  Report Type: Spontaneous
  Country: IE (occurrence: IE)
  Receive Date: 20130418
  Receipt Date: 20130418
  Transmission Date: 20140414
  Serious: Yes (Hospitalization)
  Sender: FDA-Public Use
  Company Number: IE-GLAXOSMITHKLINE-B0884931A

PATIENT
  Age: 49 Year
  Sex: Male
  Weight: 81.4 kg

DRUGS (33)
  1. VOTRIENT [Suspect]
     Indication: EWING^S SARCOMA
     Route: 048
     Dates: start: 20121026
  2. ALPRAZOLAM [Concomitant]
     Indication: SEDATIVE THERAPY
     Route: 048
  3. CO-AMOXICLAV [Concomitant]
     Route: 048
  4. CALCIUM GLUCONATE [Concomitant]
     Route: 030
     Dates: start: 20121016
  5. CARBOCISTEINE [Concomitant]
     Dosage: 15ML THREE TIMES PER DAY
     Dates: start: 20120918, end: 20120919
  6. CIPROFLOXACIN [Concomitant]
     Dates: start: 20120912, end: 20120913
  7. CODEINE [Concomitant]
     Dates: start: 20120916, end: 20120918
  8. DOMPERIDONE [Concomitant]
     Indication: NAUSEA
     Dosage: 20MG THREE TIMES PER DAY
     Route: 048
     Dates: start: 20120723, end: 20121106
  9. ESOMEPRAZOLE [Concomitant]
     Route: 048
     Dates: start: 20120925, end: 20121106
  10. FENTANYL [Concomitant]
     Dates: start: 20121023, end: 20121106
  11. FLUCONAZOLE [Concomitant]
     Dates: start: 20121023, end: 20121026
  12. GENTAMICIN [Concomitant]
     Dates: start: 20121015, end: 20121023
  13. UNKNOWN DRUG [Concomitant]
     Route: 061
     Dates: start: 20120925, end: 20121126
  14. LINEZOLID [Concomitant]
     Dates: start: 20120925, end: 20121004
  15. LOPERAMIDE [Concomitant]
     Dates: start: 20120914, end: 20121013
  16. MEFENAMIC ACID [Concomitant]
     Dates: start: 20121004, end: 20121013
  17. MORPHINE [Concomitant]
     Dates: start: 20120820, end: 20121106
  18. ONDANSETRON [Concomitant]
     Dates: start: 20121020, end: 20121106
  19. OXYCODONE [Concomitant]
     Dates: start: 20121024, end: 20121102
  20. PANTOPRAZOLE [Concomitant]
     Dates: start: 20120716, end: 20120921
  21. PARACETAMOL [Concomitant]
     Dates: start: 20120718, end: 20121106
  22. PEGFILGRASTIM [Concomitant]
     Dates: start: 20121013
  23. TAZOCIN [Concomitant]
     Dates: start: 20121007, end: 20121023
  24. LYRICA [Concomitant]
     Dates: start: 20120814, end: 20121031
  25. PROCHLORPERAZINE [Concomitant]
     Dates: start: 20121020, end: 20121025
  26. ROSUVASTATIN [Concomitant]
     Dates: start: 20120117, end: 20121106
  27. SENNA [Concomitant]
     Dates: start: 20121017, end: 20121026
  28. INNOHEP [Concomitant]
     Dates: start: 20120614, end: 20121106
  29. VANCOMYCIN [Concomitant]
     Dates: start: 20120925
  30. ZOMETA [Concomitant]
     Dates: start: 20121004
  31. ZOLPIDEM [Concomitant]
     Dates: start: 20120927, end: 20121106
  32. TOPOTECAN [Concomitant]
     Dates: start: 20120723, end: 20121013
  33. CYCLOPHOSPHAMIDE [Concomitant]

REACTIONS (1)
  - Renal failure acute [Unknown]
